FAERS Safety Report 5017240-3 (Version None)
Quarter: 2006Q2

REPORT INFORMATION
  Report Type: 
  Country: None (occurrence: None)
  Receive Date: 20060414
  Receipt Date: 20060303
  Transmission Date: 20061013
  Serious: No
  Sender: FDA-Public Use
  Company Number: 2006SP001067

PATIENT
  Age: 76 Year
  Sex: Male
  Weight: 83.9154 kg

DRUGS (7)
  1. LUNESTA [Suspect]
     Indication: INSOMNIA
     Dosage: SEE IMAGE
     Route: 048
     Dates: start: 20051205, end: 20060301
  2. LUNESTA [Suspect]
     Indication: INSOMNIA
     Dosage: SEE IMAGE
     Route: 048
     Dates: start: 20060302
  3. LORAZEPAM [Concomitant]
  4. VERAPAMIL [Concomitant]
  5. METOPROLOL TARTRATE [Concomitant]
  6. SLYVESTRAN [Concomitant]
  7. PROVIGIL [Concomitant]

REACTIONS (2)
  - MIDDLE INSOMNIA [None]
  - SOMNOLENCE [None]
